FAERS Safety Report 8332728-5 (Version None)
Quarter: 2012Q2

REPORT INFORMATION
  Report Type: 
  Country: None (occurrence: None)
  Receive Date: 20120503
  Receipt Date: 20120418
  Transmission Date: 20120825
  Serious: Yes (Hospitalization)
  Sender: FDA-Public Use
  Company Number: CN-JNJFOC-20120501281

PATIENT
  Sex: Male

DRUGS (2)
  1. NIZORAL [Suspect]
     Indication: VITAMIN B1 DEFICIENCY
     Route: 048
     Dates: start: 20111013, end: 20111028
  2. NIZORAL [Suspect]
     Indication: TINEA PEDIS
     Route: 048
     Dates: start: 20111013, end: 20111028

REACTIONS (1)
  - LIVER INJURY [None]
